FAERS Safety Report 12515991 (Version 4)
Quarter: 2016Q3

REPORT INFORMATION
  Report Type: Spontaneous
  Country: PL (occurrence: PL)
  Receive Date: 20160630
  Receipt Date: 20160729
  Transmission Date: 20161109
  Serious: Yes (Other)
  Sender: FDA-Public Use
  Company Number: PL-ACTAVIS-2016-14188

PATIENT
  Age: 26 Year
  Sex: Male

DRUGS (15)
  1. MIANSERIN (UNKNOWN) [Suspect]
     Active Substance: MIANSERIN
     Indication: DEPRESSION
     Dosage: 5 MG, UNKNOWN
     Route: 065
  2. CLORAZEPATE DIPOTASSIUM (WATSON LABORATORIES) [Suspect]
     Active Substance: CLORAZEPATE DIPOTASSIUM
     Indication: HEPATO-LENTICULAR DEGENERATION
  3. VALPROIC ACID. [Suspect]
     Active Substance: VALPROIC ACID
     Indication: HEPATO-LENTICULAR DEGENERATION
  4. ZINC [Concomitant]
     Active Substance: ZINC\ZINC CHLORIDE
     Indication: HEPATO-LENTICULAR DEGENERATION
     Dosage: 180 MG, UNKNOWN
     Route: 065
  5. HYDROXYZINE [Suspect]
     Active Substance: HYDROXYZINE\HYDROXYZINE HYDROCHLORIDE
     Indication: MANIA
     Dosage: UNK, AD-HOC DOSES
     Route: 065
  6. HYDROXYZINE [Suspect]
     Active Substance: HYDROXYZINE\HYDROXYZINE HYDROCHLORIDE
     Indication: HEPATO-LENTICULAR DEGENERATION
  7. CLOMIPRAMINE (UNKNOWN) [Suspect]
     Active Substance: CLOMIPRAMINE
     Indication: DEPRESSION
     Dosage: 75 MG, UNKNOWN
     Route: 065
  8. QUETIAPINE (UNKNOWN) [Suspect]
     Active Substance: QUETIAPINE
     Indication: HEPATO-LENTICULAR DEGENERATION
  9. ARIPIPRAZOLE (UNKNOWN) [Suspect]
     Active Substance: ARIPIPRAZOLE
     Indication: MANIA
     Dosage: UNK
     Route: 065
  10. OLANZAPINE (UNKNOWN) [Suspect]
     Active Substance: OLANZAPINE
     Indication: MANIA
     Dosage: 15 MG, DAILY
     Route: 065
  11. OLANZAPINE (UNKNOWN) [Suspect]
     Active Substance: OLANZAPINE
     Indication: HEPATO-LENTICULAR DEGENERATION
  12. CLORAZEPATE DIPOTASSIUM (WATSON LABORATORIES) [Suspect]
     Active Substance: CLORAZEPATE DIPOTASSIUM
     Indication: MANIA
     Dosage: UNK, AD-HOC DOSES
     Route: 065
  13. ARIPIPRAZOLE (UNKNOWN) [Suspect]
     Active Substance: ARIPIPRAZOLE
     Indication: HEPATO-LENTICULAR DEGENERATION
  14. VALPROIC ACID. [Suspect]
     Active Substance: VALPROIC ACID
     Indication: MANIA
     Dosage: 1500 MG, DAILY
     Route: 065
  15. QUETIAPINE (UNKNOWN) [Suspect]
     Active Substance: QUETIAPINE
     Indication: MANIA
     Dosage: UNK
     Route: 065

REACTIONS (5)
  - Salivary hypersecretion [Unknown]
  - Dyskinesia [Not Recovered/Not Resolved]
  - Dysarthria [Recovered/Resolved]
  - Postural tremor [Not Recovered/Not Resolved]
  - Dysphagia [Recovered/Resolved]

NARRATIVE: CASE EVENT DATE: 201208
